FAERS Safety Report 18284516 (Version 1)
Quarter: 2020Q3

REPORT INFORMATION
  Report Type: Spontaneous
  Country: FR (occurrence: FR)
  Receive Date: 20200919
  Receipt Date: 20200919
  Transmission Date: 20201103
  Serious: Yes (Other)
  Sender: FDA-Public Use
  Company Number: FR-AUROBINDO-AUR-APL-2019-028574

PATIENT
  Age: 44 Year
  Sex: Female

DRUGS (8)
  1. RANITIDINE. [Suspect]
     Active Substance: RANITIDINE
     Indication: PRODUCT USED FOR UNKNOWN INDICATION
     Dosage: 1/2 CP DE 300 MG X 2 PAR JOUR
     Route: 048
     Dates: start: 20190117
  2. CORTANCYL [Concomitant]
     Active Substance: PREDNISONE
     Indication: SPONDYLITIS
     Dosage: 7 MILLIGRAM, ONCE A DAY
     Route: 048
     Dates: start: 20190213
  3. CIMZIA [Concomitant]
     Active Substance: CERTOLIZUMAB PEGOL
     Indication: SPONDYLITIS
     Dosage: 200 MILLIGRAM, EVERY 2 WEEK
     Route: 058
     Dates: start: 20190322
  4. PRIMPERAN [Suspect]
     Active Substance: METOCLOPRAMIDE HYDROCHLORIDE
     Indication: NAUSEA
     Dosage: UNK (AUTOM?DICATION LORS DE NAUS?ES)
     Route: 048
     Dates: end: 20190330
  5. DOLIPRANE [Concomitant]
     Active Substance: ACETAMINOPHEN
     Indication: SPONDYLITIS
     Dosage: 3 GRAM, ONCE A DAY
     Route: 048
     Dates: start: 20190213
  6. LOXEN [Concomitant]
     Indication: HYPERTENSION
     Dosage: 2 DOSAGE FORM, ONCE A DAY
     Route: 048
     Dates: start: 20190213
  7. NASONEX [Concomitant]
     Active Substance: MOMETASONE FUROATE
     Indication: PRODUCT USED FOR UNKNOWN INDICATION
     Dosage: 1 PULV?RISATION DEUX FOIS PAR JOUR
     Route: 045
     Dates: start: 20190213
  8. ALPRAZOLAM. [Suspect]
     Active Substance: ALPRAZOLAM
     Indication: DEPRESSION
     Dosage: CP DE 0.25 MG SOIT 0.75 MG PAR JOUR
     Route: 048
     Dates: start: 20190213

REACTIONS (1)
  - Hyperprolactinaemia [Not Recovered/Not Resolved]

NARRATIVE: CASE EVENT DATE: 20190330
